FAERS Safety Report 11459754 (Version 1)
Quarter: 2015Q3

REPORT INFORMATION
  Report Type: Spontaneous
  Country: US (occurrence: US)
  Receive Date: 20150904
  Receipt Date: 20150904
  Transmission Date: 20151125
  Serious: Yes (Other)
  Sender: FDA-Public Use
  Company Number: US-TEVA-591488ACC

PATIENT
  Age: 31 Year
  Sex: Female
  Weight: 122.58 kg

DRUGS (2)
  1. PARAGARD T 380A [Suspect]
     Active Substance: COPPER
     Indication: CONTRACEPTION
     Route: 015
     Dates: start: 20150821
  2. PRENATAL VITAMINS [Concomitant]
     Active Substance: VITAMINS
     Indication: BREAST FEEDING

REACTIONS (3)
  - Device dislocation [Not Recovered/Not Resolved]
  - Exposure during breast feeding [Unknown]
  - Pelvic discomfort [Not Recovered/Not Resolved]

NARRATIVE: CASE EVENT DATE: 20150824
